FAERS Safety Report 15905918 (Version 2)
Quarter: 2019Q1

REPORT INFORMATION
  Report Type: Report from Study
  Country: None (occurrence: GB)
  Receive Date: 20190204
  Receipt Date: 20190327
  Transmission Date: 20190417
  Serious: Yes (Hospitalization, Other)
  Sender: FDA-Public Use
  Company Number: GB-ABBVIE-19S-167-2644172-00

PATIENT
  Sex: Female

DRUGS (2)
  1. DUODOPA [Suspect]
     Active Substance: CARBIDOPA\LEVODOPA
     Indication: PARKINSON^S DISEASE
     Dosage: 100ML CASSETTE?5MG/1ML?20MG/1ML
     Route: 050
  2. DUODOPA [Suspect]
     Active Substance: CARBIDOPA\LEVODOPA
     Dosage: 100ML CASSETTE?5MG/1ML?20MG/1ML
     Route: 050
     Dates: start: 2019

REACTIONS (5)
  - Surgery [Unknown]
  - Mastectomy [Recovered/Resolved]
  - Device dislocation [Recovered/Resolved]
  - Device connection issue [Unknown]
  - Medical device discomfort [Unknown]
